FAERS Safety Report 15704384 (Version 2)
Quarter: 2019Q2

REPORT INFORMATION
  Report Type: Spontaneous
  Country: US (occurrence: US)
  Receive Date: 20181210
  Receipt Date: 20190626
  Transmission Date: 20190711
  Serious: No
  Sender: FDA-Public Use
  Company Number: US-MYLANLABS-2018M1087803

PATIENT
  Age: 85 Year
  Sex: Female
  Weight: 58 kg

DRUGS (2)
  1. ESTRADIOL VAGINAL CREAM USP [Suspect]
     Active Substance: ESTRADIOL
     Indication: VULVOVAGINAL DRYNESS
     Dosage: 2 GRAM, QD, NIGHTLY FOR 30 DAYS
     Route: 067
     Dates: start: 20181112, end: 20181119
  2. ESTRADIOL VAGINAL CREAM USP [Suspect]
     Active Substance: ESTRADIOL
     Indication: VULVOVAGINAL BURNING SENSATION

REACTIONS (4)
  - Off label use [Unknown]
  - Nipple disorder [Not Recovered/Not Resolved]
  - Headache [Not Recovered/Not Resolved]
  - Breast discomfort [Not Recovered/Not Resolved]

NARRATIVE: CASE EVENT DATE: 20181112
